FAERS Safety Report 15893255 (Version 1)
Quarter: 2019Q1

REPORT INFORMATION
  Report Type: Spontaneous
  Country: US (occurrence: US)
  Receive Date: 20190130
  Receipt Date: 20190130
  Transmission Date: 20190417
  Serious: No
  Sender: FDA-Public Use
  Company Number: US-UNITED THERAPEUTICS-UNT-2019-000871

PATIENT
  Sex: Female
  Weight: 69.84 kg

DRUGS (4)
  1. VELETRI [Suspect]
     Active Substance: EPOPROSTENOL
     Indication: PRODUCT USED FOR UNKNOWN INDICATION
     Dosage: 0.004 ?G/KG, CONTINUING
     Route: 065
     Dates: start: 201901
  2. VELETRI [Suspect]
     Active Substance: EPOPROSTENOL
     Dosage: 0.005 ?G/KG, CONTINUING
     Route: 065
  3. TYVASO [Suspect]
     Active Substance: TREPROSTINIL
     Indication: PULMONARY ARTERIAL HYPERTENSION
     Dosage: 18-54 ?G, QID
     Dates: start: 20170202
  4. TYVASO [Suspect]
     Active Substance: TREPROSTINIL
     Dosage: 60-120 ?G, QID

REACTIONS (6)
  - Headache [Unknown]
  - Pain in jaw [Unknown]
  - Vomiting [Unknown]
  - Off label use [Unknown]
  - Flushing [Unknown]
  - Nausea [Unknown]
